FAERS Safety Report 6584315-7 (Version None)
Quarter: 2010Q1

REPORT INFORMATION
  Report Type: 
  Country: None (occurrence: None)
  Receive Date: 20100216
  Receipt Date: 20100211
  Transmission Date: 20100710
  Serious: No
  Sender: FDA-Public Use
  Company Number: US-ABBOTT-10P-163-0625047-00

PATIENT
  Sex: Female
  Weight: 167.98 kg

DRUGS (7)
  1. SIMCOR [Suspect]
     Indication: HIGH DENSITY LIPOPROTEIN DECREASED
     Dosage: SIMCOR
     Dates: start: 20100204
  2. SIMCOR [Suspect]
     Dosage: NIASPAN 1500 MG
     Dates: start: 20100203
  3. ASPIRIN [Concomitant]
     Indication: DRUG USE FOR UNKNOWN INDICATION
     Dosage: AT BEDTIME
  4. ZETIA [Concomitant]
     Indication: DRUG USE FOR UNKNOWN INDICATION
  5. ONGLYZA [Concomitant]
     Indication: DRUG USE FOR UNKNOWN INDICATION
  6. GLEEVEC [Concomitant]
     Indication: CHEMOTHERAPY
  7. LEVOXYL [Concomitant]
     Indication: DRUG USE FOR UNKNOWN INDICATION

REACTIONS (2)
  - BLOOD CREATININE INCREASED [None]
  - BLOOD GLUCOSE INCREASED [None]
